FAERS Safety Report 10174684 (Version 1)
Quarter: 2014Q2

REPORT INFORMATION
  Report Type: Spontaneous
  Country: US (occurrence: None)
  Receive Date: 20140416
  Receipt Date: 20140416
  Transmission Date: 20141212
  Serious: Yes (Hospitalization)
  Sender: FDA-Public Use
  Company Number: 163-POMAL-13113782

PATIENT
  Age: 87 Year
  Sex: Male
  Weight: 67.59 kg

DRUGS (7)
  1. POMALYST (POMALIDOMIDE) (4 MILLIGRAM, CAPSULES) [Suspect]
     Indication: PLASMA CELL MYELOMA
     Dosage: 4MG, 21 IN 28D, PO
     Route: 048
     Dates: start: 20130712, end: 201309
  2. ALKERAN (MELPHALAN) [Concomitant]
  3. DOXAZOLSIN (DOXAZOSIN) [Concomitant]
  4. DOXAZOSIN (DOXAZOSIN) [Concomitant]
  5. HYDROCODONE/APAP (VICODIN) [Concomitant]
  6. OMEPRAZOLE (OMEPRAZOLE) [Concomitant]
  7. PREDISONE (PREDNISONE) [Concomitant]

REACTIONS (1)
  - Muscle spasms [None]
